FAERS Safety Report 17069555 (Version 6)
Quarter: 2019Q4

REPORT INFORMATION
  Report Type: Spontaneous
  Country: FR (occurrence: FR)
  Receive Date: 20191125
  Receipt Date: 20191205
  Transmission Date: 20200122
  Serious: Yes (Hospitalization, Other)
  Sender: FDA-Public Use
  Company Number: FR-PFIZER INC-2019509653

PATIENT
  Age: 86 Year
  Sex: Female
  Weight: 70 kg

DRUGS (12)
  1. TRAMADOL ARROW [Suspect]
     Active Substance: TRAMADOL
     Dosage: 3 DF, QD
     Route: 048
  2. PARACETAMOL [Concomitant]
     Active Substance: ACETAMINOPHEN
     Dosage: 4 DF, QD
     Route: 048
  3. COLPOTROPHINE [Concomitant]
     Active Substance: PROMESTRIENE
     Dosage: 3 DOSAGE FORM WEEKLY
     Route: 067
  4. INEXIUM [Suspect]
     Active Substance: ESOMEPRAZOLE
     Dosage: 1 DF, QD
     Route: 048
  5. ENSTILAR [Concomitant]
     Active Substance: BETAMETHASONE DIPROPIONATE\CALCIPOTRIENE HYDRATE
     Dosage: 1 DF, QD
     Route: 003
  6. ELIQUIS [Suspect]
     Active Substance: APIXABAN
     Dosage: 2 DF, QD
     Route: 048
  7. TRIATEC (RAMIPRIL) [Suspect]
     Active Substance: RAMIPRIL
     Dosage: 1 DF, QD
     Route: 048
  8. LACTULOSE. [Concomitant]
     Active Substance: LACTULOSE
     Dosage: 1 DF, QD
     Route: 048
  9. DIPROSALIC [Concomitant]
     Active Substance: BETAMETHASONE DIPROPIONATE
     Dosage: 1 DF, QD
     Route: 003
  10. CEFTRIAXONE SODIUM. [Suspect]
     Active Substance: CEFTRIAXONE SODIUM
     Indication: URINARY TRACT INFECTION
     Dosage: 1 G, 1X/DAY
     Route: 048
     Dates: start: 20190505, end: 20190507
  11. IMOVANE [Suspect]
     Active Substance: ZOPICLONE
     Dosage: 1 DF, QD
     Route: 048
  12. TRAVATAN [Concomitant]
     Active Substance: TRAVOPROST
     Dosage: 2 GTT DROPS, QD
     Route: 047

REACTIONS (1)
  - Cholestasis [Recovered/Resolved]

NARRATIVE: CASE EVENT DATE: 20190509
